FAERS Safety Report 10255820 (Version 1)
Quarter: 2014Q2

REPORT INFORMATION
  Report Type: Spontaneous
  Country: US (occurrence: None)
  Receive Date: 20140522
  Receipt Date: 20140522
  Transmission Date: 20141212
  Serious: No
  Sender: FDA-Public Use
  Company Number: 1000053141

PATIENT
  Age: 68 Year
  Sex: Female

DRUGS (3)
  1. TUDORZA PRESSAIR (ACLIDINIUM BROMIDE) (400 MICROGRAM, POWDER) [Suspect]
     Indication: EMPHYSEMA
     Dosage: 800 UG (400 UG, 2 IN 1 D)?
     Route: 055
     Dates: start: 201311, end: 20140122
  2. TUDORZA PRESSAIR (ACLIDINIUM BROMIDE) (400 MICROGRAM, POWDER) [Suspect]
     Indication: EMPHYSEMA
  3. MUPIROCIN [Concomitant]

REACTIONS (2)
  - Urticaria [None]
  - Headache [None]
